FAERS Safety Report 5994760-6 (Version None)
Quarter: 2008Q4

REPORT INFORMATION
  Report Type: 
  Country: None (occurrence: None)
  Receive Date: 20081209
  Receipt Date: 20080903
  Transmission Date: 20090506
  Serious: No
  Sender: FDA-Public Use
  Company Number: 002#2#2008-00664

PATIENT
  Sex: Male
  Weight: 82 kg

DRUGS (7)
  1. NEUPRO [Suspect]
     Indication: PARKINSON'S DISEASE
     Dosage: 6MG/24H,1 IN 1 D,TRANSDERMAL ; 2MG/24H,1 IN 1 D,TRANSDERMAL
     Route: 062
     Dates: end: 20080905
  2. NEUPRO [Suspect]
     Indication: PARKINSON'S DISEASE
     Dosage: 6MG/24H,1 IN 1 D,TRANSDERMAL ; 2MG/24H,1 IN 1 D,TRANSDERMAL
     Route: 062
     Dates: start: 20070101
  3. LISINOPRIL [Concomitant]
  4. CARBIDOPA AND LEVODOPA [Concomitant]
  5. CITALOPRAM HYDROBROMIDE [Concomitant]
  6. SIMVASTATIN [Concomitant]
  7. DOXAZOXIN [Concomitant]

REACTIONS (1)
  - DRUG ADMINISTRATION ERROR [None]
